FAERS Safety Report 7399361-3 (Version None)
Quarter: 2011Q2

REPORT INFORMATION
  Report Type: 
  Country: None (occurrence: None)
  Receive Date: 20110407
  Receipt Date: 20110328
  Transmission Date: 20111010
  Serious: Yes (Hospitalization)
  Sender: FDA-Public Use
  Company Number: US-MYLANLABS-2011S1005492

PATIENT
  Age: 69 Year
  Sex: Male
  Weight: 102.06 kg

DRUGS (8)
  1. METFORMIN [Concomitant]
  2. LISINOPRIL [Concomitant]
  3. TAMSULOSIN HCL [Concomitant]
  4. MULTIVITAMIN [Concomitant]
  5. HYDROCHLOROTHIAZIDE [Concomitant]
  6. MECLIZINE [Concomitant]
     Indication: DIZZINESS
  7. FINASTERIDE [Concomitant]
  8. BICALUTAMIDE [Suspect]
     Indication: PROSTATIC SPECIFIC ANTIGEN
     Route: 048
     Dates: start: 20100501

REACTIONS (6)
  - BLOOD POTASSIUM DECREASED [None]
  - DYSPNOEA [None]
  - CHEST PAIN [None]
  - VENTRICULAR EXTRASYSTOLES [None]
  - BLOOD MAGNESIUM DECREASED [None]
  - SUPRAVENTRICULAR EXTRASYSTOLES [None]
